FAERS Safety Report 8368879-9 (Version None)
Quarter: 2012Q2

REPORT INFORMATION
  Report Type: 
  Country: None (occurrence: None)
  Receive Date: 20120516
  Receipt Date: 20120409
  Transmission Date: 20120825
  Serious: Yes (Hospitalization, Other)
  Sender: FDA-Public Use
  Company Number: IN-007725

PATIENT
  Age: 55 Year
  Sex: Female

DRUGS (8)
  1. CIPROFLOXACIN [Concomitant]
  2. CEFTAZIDIME [Concomitant]
  3. PERINORM (METOCLOPRAMIDE) [Concomitant]
  4. CHLORAMBUCIL (CHLORAMBUCIL) [Suspect]
     Indication: CHRONIC LYMPHOCYTIC LEUKAEMIA
     Dosage: ORAL
     Route: 048
     Dates: start: 20100316
  5. GRANISETRON [Concomitant]
  6. AMIKACIN [Concomitant]
  7. METRONIDAZOLE [Concomitant]
  8. RABEPRAZOLE SODIUM [Concomitant]

REACTIONS (4)
  - HAEMOGLOBIN DECREASED [None]
  - DIARRHOEA [None]
  - VOMITING [None]
  - GASTROENTERITIS [None]
